FAERS Safety Report 13426172 (Version 1)
Quarter: 2017Q2

REPORT INFORMATION
  Report Type: Spontaneous
  Country: US (occurrence: US)
  Receive Date: 20170411
  Receipt Date: 20170411
  Transmission Date: 20170830
  Serious: No
  Sender: FDA-Public Use
  Company Number: US-JNJFOC-20170121454

PATIENT
  Sex: Male

DRUGS (1)
  1. REMICADE [Suspect]
     Active Substance: INFLIXIMAB
     Indication: PRODUCT USED FOR UNKNOWN INDICATION
     Route: 042

REACTIONS (13)
  - Abdominal adhesions [Unknown]
  - Anxiety [Unknown]
  - Anorectal discomfort [Unknown]
  - Blood glucose increased [Unknown]
  - Drug ineffective [Unknown]
  - Colitis [Unknown]
  - Proctitis [Unknown]
  - Anal incontinence [Not Recovered/Not Resolved]
  - Nausea [Unknown]
  - Substance use [Unknown]
  - Anal inflammation [Unknown]
  - Osteoporosis [Unknown]
  - Pain [Unknown]
